FAERS Safety Report 4974087-1 (Version None)
Quarter: 2006Q2

REPORT INFORMATION
  Report Type: 
  Country: None (occurrence: None)
  Receive Date: 20060417
  Receipt Date: 20060407
  Transmission Date: 20061013
  Serious: Yes (Hospitalization)
  Sender: FDA-Public Use
  Company Number: US-ROCHE-443965

PATIENT
  Age: 51 Year
  Sex: Female

DRUGS (3)
  1. XELODA [Suspect]
     Indication: BREAST CANCER
     Dosage: STOPPED FOR ONE WEEK.
     Route: 065
  2. XELODA [Suspect]
     Route: 065
  3. DILANTIN [Concomitant]
     Route: 065
     Dates: end: 20060415

REACTIONS (2)
  - CONVULSION [None]
  - DRUG LEVEL INCREASED [None]
